FAERS Safety Report 26070072 (Version 2)
Quarter: 2025Q4

REPORT INFORMATION
  Report Type: Report from Study
  Country: US (occurrence: US)
  Receive Date: 20251120
  Receipt Date: 20251129
  Transmission Date: 20260117
  Serious: No
  Sender: ABBVIE
  Company Number: US-ABBVIE-6555287

PATIENT
  Age: 67 Year
  Sex: Female

DRUGS (1)
  1. QULIPTA [Suspect]
     Active Substance: ATOGEPANT
     Indication: Migraine
     Route: 048
     Dates: start: 20251110

REACTIONS (10)
  - Autoimmune disorder [Not Recovered/Not Resolved]
  - Vomiting [Unknown]
  - Dry throat [Unknown]
  - Dry mouth [Unknown]
  - Oropharyngeal pain [Unknown]
  - Dry eye [Unknown]
  - Gastrooesophageal reflux disease [Unknown]
  - Eye discharge [Unknown]
  - Medication overuse headache [Unknown]
  - Drug intolerance [Not Recovered/Not Resolved]

NARRATIVE: CASE EVENT DATE: 20251101
